FAERS Safety Report 4763380-3 (Version None)
Quarter: 2005Q3

REPORT INFORMATION
  Report Type: 
  Country: None (occurrence: None)
  Receive Date: 20050901
  Receipt Date: 20050629
  Transmission Date: 20060218
  Serious: No
  Sender: FDA-Public Use
  Company Number: 200511313BWH

PATIENT
  Age: 50 Year
  Sex: Male

DRUGS (1)
  1. LEVITRA [Suspect]
     Dosage: 10 MG, TOTAL DAILY, ORAL; 15 MG, Q3WK, ORAL
     Route: 048

REACTIONS (1)
  - DRUG EFFECT DECREASED [None]
